FAERS Safety Report 8467873-7 (Version None)
Quarter: 2012Q2

REPORT INFORMATION
  Report Type: 
  Country: None (occurrence: None)
  Receive Date: 20120626
  Receipt Date: 20120620
  Transmission Date: 20120825
  Serious: Yes (Other)
  Sender: FDA-Public Use
  Company Number: RO-ROCHE-1080208

PATIENT
  Sex: Female

DRUGS (2)
  1. RIBAVIRIN [Concomitant]
     Indication: HEPATITIS C
     Dates: start: 20110912
  2. PEGINTERFERON ALFA-2A [Suspect]
     Indication: HEPATITIS C
     Dates: start: 20110912

REACTIONS (2)
  - PYREXIA [None]
  - RED BLOOD CELL SEDIMENTATION RATE INCREASED [None]
